FAERS Safety Report 13647661 (Version 1)
Quarter: 2017Q2

REPORT INFORMATION
  Report Type: Spontaneous
  Country: MX (occurrence: MX)
  Receive Date: 20170613
  Receipt Date: 20170613
  Transmission Date: 20170830
  Serious: Yes (Hospitalization)
  Sender: FDA-Public Use
  Company Number: MX-UNICHEM LABORATORIES LIMITED-UCM201706-000170

PATIENT
  Age: 67 Year
  Sex: Female

DRUGS (8)
  1. RALOXIFENE. [Suspect]
     Active Substance: RALOXIFENE
     Indication: DEPRESSION
  2. DESVENLAFAXINE. [Suspect]
     Active Substance: DESVENLAFAXINE
     Indication: DEPRESSION
  3. PIRACETAM [Suspect]
     Active Substance: PIRACETAM
     Indication: DEPRESSION
  4. NO DRUG NAME [Suspect]
     Active Substance: UNSPECIFIED INGREDIENT
  5. QUETIAPINE. [Suspect]
     Active Substance: QUETIAPINE
     Indication: DEPRESSION
  6. LEVETIRACETAM. [Suspect]
     Active Substance: LEVETIRACETAM
     Indication: DEPRESSION
  7. NIFEDIPINE. [Suspect]
     Active Substance: NIFEDIPINE
     Indication: HYPERTENSION
  8. ATORVASTATIN [Concomitant]
     Active Substance: ATORVASTATIN
     Indication: DYSLIPIDAEMIA

REACTIONS (8)
  - Peritonitis [Recovered/Resolved]
  - Necrosis [Recovered/Resolved]
  - Pneumatosis [None]
  - Large intestine perforation [Recovered/Resolved]
  - Ischaemia [Recovered/Resolved]
  - Dehydration [None]
  - Colonic pseudo-obstruction [Recovered/Resolved]
  - Leukopenia [None]
